FAERS Safety Report 9803187 (Version 1)
Quarter: 2014Q1

REPORT INFORMATION
  Report Type: Spontaneous
  Country: US (occurrence: None)
  Receive Date: 20140107
  Receipt Date: 20140107
  Transmission Date: 20141002
  Serious: Yes (Hospitalization, Disabling, Other)
  Sender: FDA-Public Use
  Company Number: None

PATIENT
  Age: 50 Year
  Sex: Male
  Weight: 81.65 kg

DRUGS (1)
  1. LEVAQUIN [Suspect]
     Indication: SINUSITIS
     Dosage: 10   ONCE DAILY  TAKEN BY MOUTH
     Route: 048
     Dates: start: 20010604, end: 20040115

REACTIONS (5)
  - Road traffic accident [None]
  - Tendon graft [None]
  - Patella fracture [None]
  - Knee arthroplasty [None]
  - Tendon disorder [None]
